FAERS Safety Report 4399700-1 (Version None)
Quarter: 2004Q3

REPORT INFORMATION
  Report Type: 
  Country: None (occurrence: None)
  Receive Date: 20040713
  Receipt Date: 20040628
  Transmission Date: 20050211
  Serious: Yes (Other)
  Sender: FDA-Public Use
  Company Number: US-JNJFOC-20040305843

PATIENT
  Age: 14 Year
  Sex: Female

DRUGS (11)
  1. REMICADE [Suspect]
     Indication: CROHN'S DISEASE
     Dosage: INTRAVENOUS (SEE IMAGE)
     Route: 042
     Dates: start: 20040101
  2. REMICADE [Suspect]
     Indication: JUVENILE ARTHRITIS
     Dosage: INTRAVENOUS (SEE IMAGE)
     Route: 042
     Dates: start: 20040101
  3. REMICADE [Suspect]
     Indication: CROHN'S DISEASE
     Dosage: INTRAVENOUS (SEE IMAGE)
     Route: 042
     Dates: start: 20040101
  4. REMICADE [Suspect]
     Indication: JUVENILE ARTHRITIS
     Dosage: INTRAVENOUS (SEE IMAGE)
     Route: 042
     Dates: start: 20040101
  5. REMICADE [Suspect]
     Indication: CROHN'S DISEASE
     Dosage: INTRAVENOUS (SEE IMAGE)
     Route: 042
     Dates: start: 20040301
  6. REMICADE [Suspect]
     Indication: JUVENILE ARTHRITIS
     Dosage: INTRAVENOUS (SEE IMAGE)
     Route: 042
     Dates: start: 20040301
  7. PREVACID [Concomitant]
  8. GLAUCOMA MEDICATION (ANTIGLAUCOMA PREPARATIONS AND MIOTICS) [Concomitant]
  9. AZACOL (MESALAZINE) [Concomitant]
  10. COSOPT [Concomitant]
  11. PREDFORTE (PREDNISOLONE ACETATE) [Concomitant]

REACTIONS (3)
  - ANTERIOR CHAMBER DISORDER [None]
  - DRUG INEFFECTIVE [None]
  - INTRAOCULAR PRESSURE INCREASED [None]
